FAERS Safety Report 6144342-0 (Version None)
Quarter: 2009Q2

REPORT INFORMATION
  Report Type: 
  Country: None (occurrence: None)
  Receive Date: 20090406
  Receipt Date: 20090327
  Transmission Date: 20091009
  Serious: Yes (Disabling)
  Sender: FDA-Public Use
  Company Number: JP-PFIZER INC-2009189973

PATIENT

DRUGS (6)
  1. ATARAX [Suspect]
     Indication: INSOMNIA
     Dosage: 25 MG, UNK
     Route: 030
     Dates: start: 20090209, end: 20090217
  2. DEPAKENE [Concomitant]
     Indication: BIPOLAR DISORDER
  3. AKINETON [Concomitant]
  4. ZYPREXA [Concomitant]
     Indication: DELUSION
  5. LODOPIN [Concomitant]
     Indication: DELUSION
  6. VEGETAMIN A [Concomitant]

REACTIONS (1)
  - INJECTION SITE ULCER [None]
